FAERS Safety Report 17982250 (Version 1)
Quarter: 2020Q3

REPORT INFORMATION
  Report Type: Spontaneous
  Country: US (occurrence: US)
  Receive Date: 20200702
  Receipt Date: 20200702
  Transmission Date: 20201103
  Serious: No
  Sender: FDA-Public Use
  Company Number: None

PATIENT
  Age: 28 Year
  Sex: Female

DRUGS (1)
  1. NEULASTA [Suspect]
     Active Substance: PEGFILGRASTIM
     Dosage: OTHER
     Route: 058
     Dates: start: 2020

REACTIONS (2)
  - Post procedural complication [None]
  - Therapy interrupted [None]

NARRATIVE: CASE EVENT DATE: 20200702
